FAERS Safety Report 10764791 (Version 4)
Quarter: 2015Q3

REPORT INFORMATION
  Report Type: Spontaneous
  Country: JP (occurrence: JP)
  Receive Date: 20150205
  Receipt Date: 20150803
  Transmission Date: 20151125
  Serious: Yes (Hospitalization, Other)
  Sender: FDA-Public Use
  Company Number: JP-ASTRAZENECA-2014SE74426

PATIENT
  Age: 82 Year
  Sex: Female
  Weight: 76 kg

DRUGS (10)
  1. ROZEREM [Concomitant]
     Active Substance: RAMELTEON
     Dates: start: 20140925, end: 20140925
  2. SEROQUEL [Interacting]
     Active Substance: QUETIAPINE FUMARATE
     Indication: DELIRIUM
     Route: 048
     Dates: start: 20140828, end: 20140916
  3. SEROQUEL [Suspect]
     Active Substance: QUETIAPINE FUMARATE
     Indication: DELIRIUM
     Dosage: 12.5 MG DAILY, THEN SLIGHTLY INCREASED
     Route: 048
     Dates: start: 20140818, end: 20140821
  4. WARFARIN [Interacting]
     Active Substance: WARFARIN
     Indication: ATRIAL FIBRILLATION
     Route: 048
     Dates: end: 20140806
  5. WARFARIN [Interacting]
     Active Substance: WARFARIN
     Indication: ATRIAL FIBRILLATION
     Route: 048
     Dates: start: 20140920, end: 20140925
  6. PARAMIDIN [Concomitant]
     Active Substance: BUCOLOME
     Dates: start: 20140920, end: 20140925
  7. SEROQUEL [Interacting]
     Active Substance: QUETIAPINE FUMARATE
     Indication: DELIRIUM
     Route: 048
     Dates: start: 20140825, end: 20140827
  8. SEROQUEL [Interacting]
     Active Substance: QUETIAPINE FUMARATE
     Indication: DELIRIUM
     Route: 048
     Dates: start: 20140822, end: 20140824
  9. WARFARIN [Interacting]
     Active Substance: WARFARIN
     Indication: ATRIAL FIBRILLATION
     Route: 048
     Dates: start: 20140920, end: 20140925
  10. SEROQUEL [Interacting]
     Active Substance: QUETIAPINE FUMARATE
     Indication: DELIRIUM
     Route: 048
     Dates: start: 20140925, end: 20140925

REACTIONS (5)
  - Product use issue [Unknown]
  - Sedation [Recovered/Resolved]
  - Drug interaction [Recovered/Resolved]
  - Blood pressure decreased [Recovered/Resolved]
  - Respiratory depression [Unknown]

NARRATIVE: CASE EVENT DATE: 20140818
